FAERS Safety Report 11389748 (Version 1)
Quarter: 2015Q3

REPORT INFORMATION
  Report Type: Spontaneous
  Country: US (occurrence: US)
  Receive Date: 20150817
  Receipt Date: 20150817
  Transmission Date: 20151125
  Serious: No
  Sender: FDA-Public Use
  Company Number: ALCN2015US004648

PATIENT
  Age: 10 Year
  Sex: Male

DRUGS (1)
  1. TRAVATAN Z [Suspect]
     Active Substance: TRAVOPROST
     Indication: ACCIDENTAL EXPOSURE TO PRODUCT BY CHILD
     Dosage: 2 GTT, ONCE/SINGLE
     Route: 047
     Dates: start: 20150720, end: 20150720

REACTIONS (2)
  - Ocular hyperaemia [Recovered/Resolved]
  - Accidental exposure to product by child [Recovered/Resolved]

NARRATIVE: CASE EVENT DATE: 20150721
